FAERS Safety Report 6371095-3 (Version None)
Quarter: 2009Q3

REPORT INFORMATION
  Report Type: 
  Country: None (occurrence: None)
  Receive Date: 20090923
  Receipt Date: 20090913
  Transmission Date: 20100115
  Serious: Yes (Other)
  Sender: FDA-Public Use
  Company Number: PHHY2009BR39834

PATIENT
  Age: 31 Year
  Sex: Male
  Weight: 81 kg

DRUGS (2)
  1. CODATEN [Suspect]
     Indication: PAIN IN EXTREMITY
     Dosage: 1 DF, Q6H
     Route: 048
     Dates: start: 20090912, end: 20090913
  2. DEXA-CITONEURIN [Concomitant]
     Indication: BACK PAIN
     Dosage: 1 AMPOULE EVERY TWO DAYS
     Route: 030
     Dates: start: 20090909, end: 20090913

REACTIONS (5)
  - CHILLS [None]
  - EYELID DISORDER [None]
  - MUSCULOSKELETAL STIFFNESS [None]
  - PERIPHERAL COLDNESS [None]
  - TREMOR [None]
